FAERS Safety Report 6904945-X (Version None)
Quarter: 2010Q3

REPORT INFORMATION
  Report Type: 
  Country: None (occurrence: None)
  Receive Date: 20100804
  Receipt Date: 20090805
  Transmission Date: 20110219
  Serious: No
  Sender: FDA-Public Use
  Company Number: US-PFIZER INC-2009227076

PATIENT
  Sex: Female
  Weight: 72.562 kg

DRUGS (5)
  1. LYRICA [Suspect]
     Indication: FIBROMYALGIA
     Dosage: 75 MG, 2X/DAY
     Dates: start: 20081101
  2. CYMBALTA [Concomitant]
  3. ESTRADIOL [Concomitant]
     Dosage: UNK
  4. FLUOXETINE [Concomitant]
     Indication: DEPRESSION
     Dosage: 20 MG, 2X/DAY
  5. NORTRIPTYLINE [Concomitant]
     Dosage: UNK

REACTIONS (7)
  - BACK PAIN [None]
  - DISTURBANCE IN ATTENTION [None]
  - DRUG INEFFECTIVE [None]
  - JOINT SWELLING [None]
  - PAIN IN EXTREMITY [None]
  - PERIORBITAL OEDEMA [None]
  - WEIGHT INCREASED [None]
